APPROVED DRUG PRODUCT: PROMETHAZINE PLAIN
Active Ingredient: PROMETHAZINE HYDROCHLORIDE
Strength: 6.25MG/5ML
Dosage Form/Route: SYRUP;ORAL
Application: A087953 | Product #001 | TE Code: AA
Applicant: PHARMOBEDIENT CONSULTING LLC
Approved: Nov 15, 1982 | RLD: Yes | RS: Yes | Type: RX